FAERS Safety Report 20503321 (Version 1)
Quarter: 2022Q1

REPORT INFORMATION
  Report Type: Spontaneous
  Country: US (occurrence: US)
  Receive Date: 20220222
  Receipt Date: 20220222
  Transmission Date: 20220424
  Serious: Yes (Hospitalization)
  Sender: FDA-Public Use
  Company Number: US-SA-SAC20220217001778

PATIENT
  Age: 48 Year
  Sex: Female

DRUGS (21)
  1. AUBAGIO [Suspect]
     Active Substance: TERIFLUNOMIDE
     Indication: Gastrooesophageal reflux disease
     Dosage: 14 MG, QD
     Route: 048
     Dates: start: 20191127
  2. POTASSIUM CHLORIDE [Concomitant]
     Active Substance: POTASSIUM CHLORIDE
  3. NEUPRO [Concomitant]
     Active Substance: ROTIGOTINE
  4. BIOTIN [Concomitant]
     Active Substance: BIOTIN
  5. CALCIUM [Concomitant]
     Active Substance: CALCIUM
  6. DOXYCYCLINE [Concomitant]
     Active Substance: DOXYCYCLINE
  7. SOLU-MEDROL [Concomitant]
     Active Substance: METHYLPREDNISOLONE SODIUM SUCCINATE
  8. LINZESS [Concomitant]
     Active Substance: LINACLOTIDE
  9. ACYCLOVIR [Concomitant]
     Active Substance: ACYCLOVIR
  10. LUNESTA [Concomitant]
     Active Substance: ESZOPICLONE
  11. ONDANSETRON HCL [Concomitant]
     Active Substance: ONDANSETRON HYDROCHLORIDE
  12. PREDNISONE [Concomitant]
     Active Substance: PREDNISONE
  13. VITAMIN D3 [Concomitant]
     Active Substance: CHOLECALCIFEROL
  14. MODAFINIL [Concomitant]
     Active Substance: MODAFINIL
  15. GABAPENTIN [Concomitant]
     Active Substance: GABAPENTIN
  16. ALPRAZOLAM [Concomitant]
     Active Substance: ALPRAZOLAM
  17. DICYCLOMINE HYDROCHLORIDE [Concomitant]
     Active Substance: DICYCLOMINE HYDROCHLORIDE
  18. VITAMIN B6 [Concomitant]
     Active Substance: PYRIDOXINE HYDROCHLORIDE
  19. EMGALITY [Concomitant]
     Active Substance: GALCANEZUMAB-GNLM
  20. SPIRONOLACTONE [Concomitant]
     Active Substance: SPIRONOLACTONE
  21. POTASSIUM CITRATE [Concomitant]
     Active Substance: POTASSIUM CITRATE

REACTIONS (2)
  - Gastric disorder [Unknown]
  - Product use in unapproved indication [Unknown]

NARRATIVE: CASE EVENT DATE: 20191127
